FAERS Safety Report 10551033 (Version 2)
Quarter: 2014Q4

REPORT INFORMATION
  Report Type: Spontaneous
  Country: DE (occurrence: DE)
  Receive Date: 20141029
  Receipt Date: 20141229
  Transmission Date: 20150529
  Serious: Yes (Hospitalization, Other)
  Sender: FDA-Public Use
  Company Number: DE-ROCHE-1479695

PATIENT
  Age: 88 Year
  Sex: Male
  Weight: 72 kg

DRUGS (1)
  1. ERIVEDGE [Suspect]
     Active Substance: VISMODEGIB
     Indication: BASAL CELL CARCINOMA
     Dosage: LAST DOSE PRIOR TO THE ONSET OF TRANSAMINASE INCREASE AND DRUG RELATED ICTERUS: 22/SEP/2014
     Route: 048
     Dates: start: 20140814, end: 20140922

REACTIONS (13)
  - Cholelithiasis [Recovering/Resolving]
  - Duodenal ulcer [Unknown]
  - Faeces pale [Unknown]
  - Anaemia [Recovering/Resolving]
  - Hepatitis cholestatic [Unknown]
  - Transaminases increased [Recovering/Resolving]
  - Dysgeusia [Unknown]
  - Pruritus [Unknown]
  - Gastric ulcer [Unknown]
  - Jaundice [Not Recovered/Not Resolved]
  - Cholestasis [Recovering/Resolving]
  - Myelodysplastic syndrome [Unknown]
  - Gastritis [Unknown]

NARRATIVE: CASE EVENT DATE: 20140923
